FAERS Safety Report 11254026 (Version 4)
Quarter: 2015Q4

REPORT INFORMATION
  Report Type: Spontaneous
  Country: JP (occurrence: JP)
  Receive Date: 20150709
  Receipt Date: 20151015
  Transmission Date: 20160304
  Serious: Yes (Death)
  Sender: FDA-Public Use
  Company Number: JP-SA-2015SA098156

PATIENT
  Age: 85 Year
  Sex: Male
  Weight: 55 kg

DRUGS (15)
  1. PLAVIX [Suspect]
     Active Substance: CLOPIDOGREL BISULFATE
     Indication: ANGINA PECTORIS
     Route: 048
     Dates: start: 20141015, end: 20150701
  2. BIOFERMIN [Concomitant]
     Active Substance: BACILLUS SUBTILIS\LACTOBACILLUS ACIDOPHILUS\STREPTOCOCCUS FAECAIS
     Dates: start: 201107
  3. AMLODIPINE [Concomitant]
     Active Substance: AMLODIPINE BESYLATE
     Route: 048
     Dates: start: 201305, end: 201508
  4. ALDACTONE-A [Suspect]
     Active Substance: SPIRONOLACTONE
     Indication: CARDIAC FAILURE
     Route: 048
     Dates: start: 20141008, end: 20150723
  5. MAGMITT [Suspect]
     Active Substance: MAGNESIUM OXIDE
     Indication: CONSTIPATION
     Route: 048
     Dates: start: 20141007, end: 20150804
  6. CRESTOR [Concomitant]
     Active Substance: ROSUVASTATIN CALCIUM
     Dates: start: 201209, end: 201508
  7. FUROSEMIDE. [Concomitant]
     Active Substance: FUROSEMIDE
  8. PLAVIX [Suspect]
     Active Substance: CLOPIDOGREL BISULFATE
     Indication: STENT PLACEMENT
     Route: 048
     Dates: start: 20141015, end: 20150701
  9. ZETIA [Concomitant]
     Active Substance: EZETIMIBE
     Dates: start: 201401, end: 201508
  10. BROTIZOLAM [Concomitant]
     Active Substance: BROTIZOLAM
  11. PLAVIX [Suspect]
     Active Substance: CLOPIDOGREL BISULFATE
     Indication: ACUTE CORONARY SYNDROME
     Route: 048
     Dates: start: 20141015, end: 20150701
  12. NEXIUM [Suspect]
     Active Substance: ESOMEPRAZOLE MAGNESIUM
     Indication: ULCER
     Route: 048
     Dates: start: 20140925, end: 20150723
  13. RENIVACE [Concomitant]
     Active Substance: ENALAPRIL
     Dates: start: 201107, end: 201505
  14. PLAVIX [Suspect]
     Active Substance: CLOPIDOGREL BISULFATE
     Indication: MYOCARDIAL INFARCTION
     Route: 048
     Dates: start: 20141015, end: 20150701
  15. BAYASPIRIN [Concomitant]
     Active Substance: ASPIRIN
     Route: 048
     Dates: start: 201108, end: 201508

REACTIONS (1)
  - Aplastic anaemia [Fatal]

NARRATIVE: CASE EVENT DATE: 20150223
